FAERS Safety Report 18424546 (Version 1)
Quarter: 2020Q4

REPORT INFORMATION
  Report Type: Spontaneous
  Country: FR (occurrence: FR)
  Receive Date: 20201026
  Receipt Date: 20201026
  Transmission Date: 20210114
  Serious: Yes (Death, Other)
  Sender: FDA-Public Use
  Company Number: FR-AUROBINDO-AUR-APL-2020-053092

PATIENT
  Age: 72 Year
  Sex: Female
  Weight: 58.5 kg

DRUGS (16)
  1. TRIMEBUTINE MEDISOL [Suspect]
     Active Substance: TRIMEBUTINE MALEATE
     Indication: POSTOPERATIVE ILEUS
     Dosage: 3 DOSAGE FORM, ONCE A DAY (3 AMPOULES /J)
     Route: 042
     Dates: start: 20200827
  2. BEVITINE [Suspect]
     Active Substance: THIAMINE HYDROCHLORIDE
     Indication: VITAMIN SUPPLEMENTATION
     Dosage: 1 DOSAGE FORM, ONCE A DAY
     Route: 042
     Dates: start: 20200831
  3. DIFFU K [Suspect]
     Active Substance: POTASSIUM CHLORIDE
     Indication: ELECTROLYTE SUBSTITUTION THERAPY
     Dosage: 4 DOSAGE FORM, ONCE A DAY
     Route: 048
     Dates: start: 20200915
  4. TIXTAR [Suspect]
     Active Substance: RIFAXIMIN
     Indication: HEPATIC ENCEPHALOPATHY
     Dosage: 1100 MILLIGRAM, ONCE A DAY
     Route: 048
     Dates: start: 20200907
  5. PHOCYTAN [Suspect]
     Active Substance: .ALPHA.-GLUCOSE-1-PHOSPHATE
     Indication: BLOOD PHOSPHORUS DECREASED
     Dosage: 2 DOSAGE FORM, ONCE A DAY
     Route: 042
     Dates: start: 20200918
  6. PHLOROGLUCINOL ARROW [Suspect]
     Active Substance: PHLOROGLUCINOL
     Indication: ABDOMINAL PAIN
     Dosage: 6 DOSAGE FORM, ONCE A DAY (6 AMPOULES /J)
     Route: 042
     Dates: start: 20200827
  7. SPIRONOLACTONE ARROW FILM-COATED TABLET 50 MG [Suspect]
     Active Substance: SPIRONOLACTONE
     Indication: ASCITES
     Dosage: 50 MILLIGRAM, ONCE A DAY
     Route: 048
     Dates: start: 20200827
  8. DUPHALAC [Suspect]
     Active Substance: LACTULOSE
     Indication: HEPATIC ENCEPHALOPATHY
     Dosage: 6 DOSAGE FORM, ONCE A DAY (6 SACHETS /J)
     Route: 048
     Dates: start: 20200809
  9. METRONIDAZOLE B BRAUN [Suspect]
     Active Substance: METRONIDAZOLE
     Indication: LUNG DISORDER
     Dosage: 1500 MILLIGRAM, ONCE A DAY
     Route: 042
     Dates: start: 20200917
  10. NEFOPAM MYLAN [Suspect]
     Active Substance: NEFOPAM
     Indication: PAIN
     Dosage: 40 MILLIGRAM, ONCE A DAY
     Route: 042
     Dates: start: 20200920, end: 20200920
  11. LEVOFLOXACINE KABI [Suspect]
     Active Substance: LEVOFLOXACIN
     Indication: LUNG DISORDER
     Dosage: 1000 MILLIGRAM, ONCE A DAY
     Route: 042
     Dates: start: 20200917
  12. SERESTA [Suspect]
     Active Substance: OXAZEPAM
     Indication: ANXIETY
     Dosage: 10 MILLIGRAM, ONCE A DAY
     Route: 048
     Dates: start: 20200918, end: 20200921
  13. TOPALGIC (TRAMADOL HYDROCHLORIDE) [Suspect]
     Active Substance: TRAMADOL HYDROCHLORIDE
     Indication: PAIN
     Dosage: 150 MILLIGRAM, ONCE A DAY
     Route: 042
     Dates: start: 20200826
  14. PYRIDOXINE HYDROCHLORIDE. [Suspect]
     Active Substance: PYRIDOXINE HYDROCHLORIDE
     Indication: VITAMIN SUPPLEMENTATION
     Dosage: 1 DOSAGE FORM, ONCE A DAY
     Route: 042
     Dates: start: 20200831
  15. LAROSCORBINE [Suspect]
     Active Substance: ASCORBIC ACID
     Indication: VITAMIN SUPPLEMENTATION
     Dosage: 1 DOSAGE FORM, ONCE A DAY
     Route: 042
     Dates: start: 20200831
  16. LEVETIRACETAM MYLAN [Suspect]
     Active Substance: LEVETIRACETAM
     Indication: EPILEPSY
     Dosage: 1000 MILLIGRAM, ONCE A DAY
     Route: 042
     Dates: start: 20200826

REACTIONS (4)
  - Aspiration [Fatal]
  - Tracheal obstruction [Fatal]
  - Respiratory distress [Fatal]
  - Confusional state [Fatal]

NARRATIVE: CASE EVENT DATE: 20200921
